FAERS Safety Report 23047159 (Version 1)
Quarter: 2023Q4

REPORT INFORMATION
  Report Type: Spontaneous
  Country: US (occurrence: US)
  Receive Date: 20231009
  Receipt Date: 20231009
  Transmission Date: 20240109
  Serious: Yes (Hospitalization)
  Sender: FDA-Public Use
  Company Number: US-BEH-2023164076

PATIENT
  Sex: Female

DRUGS (1)
  1. HIZENTRA [Suspect]
     Active Substance: HUMAN IMMUNOGLOBULIN G
     Indication: Hypogammaglobulinaemia
     Dosage: 7 GRAM, QW
     Route: 058
     Dates: start: 202108

REACTIONS (5)
  - Fall [Unknown]
  - Pelvic fracture [Unknown]
  - Spinal fracture [Unknown]
  - No adverse event [Unknown]
  - Therapy cessation [Unknown]
